FAERS Safety Report 9643505 (Version 1)
Quarter: 2013Q4

REPORT INFORMATION
  Report Type: Spontaneous
  Country: GB (occurrence: GB)
  Receive Date: 20131024
  Receipt Date: 20131024
  Transmission Date: 20140711
  Serious: Yes (Other)
  Sender: FDA-Public Use
  Company Number: GB-BAYER-2013-128848

PATIENT
  Sex: Female

DRUGS (1)
  1. MIRENA [Suspect]
     Dosage: 20 ?G/D, CONT
     Route: 015
     Dates: start: 2008

REACTIONS (4)
  - Device misuse [Not Recovered/Not Resolved]
  - Device dislocation [Not Recovered/Not Resolved]
  - Candida infection [None]
  - Genital disorder female [None]
